FAERS Safety Report 6194085-2 (Version None)
Quarter: 2009Q2

REPORT INFORMATION
  Report Type: 
  Country: None (occurrence: None)
  Receive Date: 20090518
  Receipt Date: 20090505
  Transmission Date: 20091009
  Serious: Yes (Hospitalization)
  Sender: FDA-Public Use
  Company Number: US-PFIZER INC-2009176534

PATIENT
  Sex: Female

DRUGS (22)
  1. *BEVACIZUMAB [Suspect]
     Indication: BREAST CANCER
     Dosage: UNK
     Dates: start: 20081203, end: 20081203
  2. *PACLITAXEL [Suspect]
     Indication: BREAST CANCER
  3. DARBEPOETIN ALFA [Concomitant]
     Indication: PROPHYLACTIC CHEMOTHERAPY
     Dosage: UNK
     Dates: start: 20081015
  4. DECADRON [Concomitant]
     Indication: PROPHYLAXIS OF NAUSEA AND VOMITING
  5. BENADRYL [Concomitant]
     Indication: PROPHYLACTIC CHEMOTHERAPY
     Dosage: UNK
  6. FAMOTIDINE [Concomitant]
     Indication: PROPHYLACTIC CHEMOTHERAPY
     Dosage: UNK
  7. PALONOSETRON [Concomitant]
     Indication: PROPHYLACTIC CHEMOTHERAPY
     Dosage: UNK
     Dates: start: 20080917, end: 20081203
  8. DARVOCET [Concomitant]
     Indication: PAIN
     Dosage: UNK
     Dates: end: 20081204
  9. FLEXTRA-DS [Concomitant]
     Dosage: UNK
  10. ACETYLSALICYLIC ACID [Concomitant]
  11. BENAZEPRIL [Concomitant]
     Indication: HYPERTENSION
  12. CORGARD [Concomitant]
     Indication: HYPERTENSION
     Dosage: UNK
  13. CYCLOBENZAPRINE [Concomitant]
     Indication: MYALGIA
     Dosage: UNK
  14. GEMFIBROZIL [Concomitant]
     Indication: HYPERCHOLESTEROLAEMIA
     Dosage: UNK
  15. HYDROCHLOROTHIAZIDE [Concomitant]
     Indication: HYPERTENSION
     Dosage: UNK
  16. METFORMIN [Concomitant]
     Indication: DIABETES MELLITUS
     Dosage: UNK
  17. PROMETHAZINE [Concomitant]
     Indication: PROPHYLAXIS OF NAUSEA AND VOMITING
     Dosage: UNK
     Dates: start: 20080917
  18. ONDANSETRON [Concomitant]
     Indication: PROPHYLAXIS OF NAUSEA AND VOMITING
     Dosage: UNK
     Dates: start: 20080917
  19. PROTONIX [Concomitant]
     Indication: DYSPEPSIA
     Dosage: UNK
     Dates: end: 20081204
  20. MONTELUKAST SODIUM [Concomitant]
     Indication: HYPERSENSITIVITY
     Dosage: UNK
     Dates: end: 20081204
  21. LORTAB [Concomitant]
     Indication: PAIN
     Dosage: UNK
     Dates: start: 20081105
  22. OXYCODONE HCL [Concomitant]
     Indication: PAIN
     Dosage: UNK
     Dates: start: 20081105

REACTIONS (1)
  - CHEST PAIN [None]
